FAERS Safety Report 9660734 (Version 2)
Quarter: 2013Q4

REPORT INFORMATION
  Report Type: Spontaneous
  Country: DE (occurrence: DE)
  Receive Date: 20131031
  Receipt Date: 20131206
  Transmission Date: 20140711
  Serious: Yes (Hospitalization, Other)
  Sender: FDA-Public Use
  Company Number: DE-PFIZER INC-2013306660

PATIENT
  Age: 24 Year
  Sex: Female
  Weight: 68 kg

DRUGS (8)
  1. PANTOZOL [Suspect]
     Indication: GASTRITIS PROPHYLAXIS
     Dosage: 20 MG, 1X/DAY
     Route: 048
     Dates: start: 20131014, end: 20131014
  2. PARACETAMOL [Suspect]
     Indication: PROCEDURAL PAIN
     Dosage: 500 MG, 4X/DAY
     Route: 048
     Dates: start: 20131014, end: 20131014
  3. NOVALGIN [Suspect]
     Indication: PROCEDURAL PAIN
     Dosage: 1 G, UNK
     Route: 042
     Dates: start: 20131014, end: 20131014
  4. NOVALGIN [Suspect]
     Dosage: 500 MG, UNK
     Route: 048
     Dates: start: 20131014, end: 20131014
  5. DOLO-DOBENDAN [Concomitant]
     Indication: OROPHARYNGEAL PAIN
     Dosage: 1 DF, UNK
     Route: 048
     Dates: start: 20131014, end: 20131014
  6. TRANXILIUM [Concomitant]
     Indication: PREMEDICATION
     Dosage: 1 DF, UNK
     Route: 048
     Dates: start: 20131014, end: 20131014
  7. DIPIDOLOR [Concomitant]
     Indication: ANALGESIC THERAPY
     Dosage: AS NEEDED SUBCUTANEOUS
     Dates: start: 20131014
  8. DIPIDOLOR [Concomitant]
     Dosage: AS NEEDED INTRAVENOUS
     Dates: start: 20131014

REACTIONS (1)
  - Agranulocytosis [Not Recovered/Not Resolved]
